FAERS Safety Report 9619344 (Version 2)
Quarter: 2015Q4

REPORT INFORMATION
  Report Type: Spontaneous
  Country: US (occurrence: US)
  Receive Date: 20131014
  Receipt Date: 20151120
  Transmission Date: 20160305
  Serious: Yes (Hospitalization)
  Sender: FDA-Public Use
  Company Number: US-BAYER-2013-123566

PATIENT
  Age: 37 Year
  Sex: Female
  Weight: 58.96 kg

DRUGS (22)
  1. BACLOFEN. [Concomitant]
     Active Substance: BACLOFEN
  2. NORCO [Concomitant]
     Active Substance: ACETAMINOPHEN\HYDROCODONE BITARTRATE
  3. SEROQUEL [Concomitant]
     Active Substance: QUETIAPINE FUMARATE
  4. KLONOPIN [Concomitant]
     Active Substance: CLONAZEPAM
  5. XOPENEX [Concomitant]
     Active Substance: LEVALBUTEROL HYDROCHLORIDE
  6. CLONAZEPAM. [Concomitant]
     Active Substance: CLONAZEPAM
  7. DUONEB [Concomitant]
     Active Substance: ALBUTEROL SULFATE\IPRATROPIUM BROMIDE
  8. ADDERALL [Concomitant]
     Active Substance: AMPHETAMINE ASPARTATE\AMPHETAMINE SULFATE\DEXTROAMPHETAMINE SACCHARATE\DEXTROAMPHETAMINE SULFATE
  9. TORADOL [Concomitant]
     Active Substance: KETOROLAC TROMETHAMINE
  10. BACTRIM DS [Concomitant]
     Active Substance: SULFAMETHOXAZOLE\TRIMETHOPRIM
  11. YAZ [Suspect]
     Active Substance: DROSPIRENONE\ETHINYL ESTRADIOL
     Indication: CONTRACEPTION
  12. ALVESCO [Concomitant]
     Active Substance: CICLESONIDE
  13. IBUPROFEN. [Concomitant]
     Active Substance: IBUPROFEN
  14. VENLAFAXINE [Concomitant]
     Active Substance: VENLAFAXINE HYDROCHLORIDE
     Dosage: 225 MG, UNK
     Route: 048
     Dates: start: 20120430
  15. GIANVI [Suspect]
     Active Substance: DROSPIRENONE\ETHINYL ESTRADIOL
  16. ZOFRAN [Concomitant]
     Active Substance: ONDANSETRON HYDROCHLORIDE
  17. OXYCODONE [Concomitant]
     Active Substance: OXYCODONE
     Dosage: 10 MG, UNK
     Route: 048
     Dates: start: 20120430
  18. ROXICODONE [Concomitant]
     Active Substance: OXYCODONE HYDROCHLORIDE
  19. DIPHENHYDRAMINE. [Concomitant]
     Active Substance: DIPHENHYDRAMINE
  20. BENADRY CODEIN [Concomitant]
  21. NEXIUM [Concomitant]
     Active Substance: ESOMEPRAZOLE MAGNESIUM
  22. FAMVIR [FAMCICLOVIR] [Concomitant]

REACTIONS (1)
  - Pulmonary embolism [Recovered/Resolved]

NARRATIVE: CASE EVENT DATE: 20120430
